FAERS Safety Report 14093879 (Version 2)
Quarter: 2017Q4

REPORT INFORMATION
  Report Type: Spontaneous
  Country: US (occurrence: US)
  Receive Date: 20171016
  Receipt Date: 20171017
  Transmission Date: 20180321
  Serious: Yes (Hospitalization)
  Sender: FDA-Public Use
  Company Number: US-PFIZER INC-2017443503

PATIENT
  Age: 65 Year
  Sex: Male
  Weight: 106.1 kg

DRUGS (24)
  1. ALENDRONATE [Concomitant]
     Active Substance: ALENDRONATE SODIUM
     Indication: OSTEOPOROSIS
     Dosage: 70 MG, WEEKLY
  2. DONEPEZIL. [Concomitant]
     Active Substance: DONEPEZIL
     Indication: NERVOUS SYSTEM DISORDER
     Dosage: 10 MG, UNK
  3. ESCITALOPRAM [Concomitant]
     Active Substance: ESCITALOPRAM OXALATE
     Dosage: 10 MG, UNK
  4. TAMSULOSIN [Concomitant]
     Active Substance: TAMSULOSIN
     Dosage: 0.4 MG, DAILY (AFTER BREAKFAST)
     Route: 048
  5. MOVANTIK [Concomitant]
     Active Substance: NALOXEGOL OXALATE
     Indication: DIARRHOEA
     Dosage: 12.5 MG, 1X/DAY
  6. MELATONIN [Concomitant]
     Active Substance: MELATONIN
     Indication: INSOMNIA
     Dosage: 5 MG, UNK
  7. LYRICA [Suspect]
     Active Substance: PREGABALIN
     Indication: BACK DISORDER
  8. TRIAMTERENE AND HYDROCHLOROTHIAZIDE [Concomitant]
     Active Substance: HYDROCHLOROTHIAZIDE\TRIAMTERENE
     Indication: DIURETIC THERAPY
     Dosage: [HYDROCHLOROTHIAZIDE 37MG]/[TRIAMTERENE 25MG], UNK
  9. LINZESS [Concomitant]
     Active Substance: LINACLOTIDE
     Indication: INTESTINAL OBSTRUCTION
  10. BENZONATATE. [Concomitant]
     Active Substance: BENZONATATE
     Indication: PROPHYLAXIS
  11. METHOCARBAMOL. [Concomitant]
     Active Substance: METHOCARBAMOL
     Indication: MUSCLE DISORDER
     Dosage: 750 MG, UNK
  12. LYRICA [Suspect]
     Active Substance: PREGABALIN
     Indication: ARTHRALGIA
     Dosage: 150 MG, 2X/DAY
     Route: 048
     Dates: start: 2008
  13. MAG 64 [Concomitant]
     Indication: MINERAL SUPPLEMENTATION
     Dosage: TWO TABLETS ONCE A DAY
  14. VITAMIN D [Concomitant]
     Active Substance: CHOLECALCIFEROL
     Indication: SUPPLEMENTATION THERAPY
     Dosage: 50000 IU, UNK
  15. POTASSIUM CHLORIDE. [Concomitant]
     Active Substance: POTASSIUM CHLORIDE
     Indication: SUPPLEMENTATION THERAPY
     Dosage: 30 MEQ(3 TABLETS OF 10MEQ MICRO CAPSULES), UNK
  16. CALCITRIOL. [Concomitant]
     Active Substance: CALCITRIOL
     Indication: VITAMIN SUPPLEMENTATION
     Dosage: 0.25 UG, UNK
  17. MOVANTIK [Concomitant]
     Active Substance: NALOXEGOL OXALATE
     Indication: CONSTIPATION
  18. LINZESS [Concomitant]
     Active Substance: LINACLOTIDE
     Indication: DIARRHOEA
     Dosage: 290 UG, UNK
  19. METHADONE [Concomitant]
     Active Substance: METHADONE HYDROCHLORIDE
     Indication: BACK PAIN
     Dosage: 10 MG, UNK
  20. XYZAL [Concomitant]
     Active Substance: LEVOCETIRIZINE DIHYDROCHLORIDE
     Indication: ANTIALLERGIC THERAPY
     Dosage: 5 MG, UNK
  21. ROSUVASTATIN CALCIUM. [Concomitant]
     Active Substance: ROSUVASTATIN CALCIUM
     Indication: BLOOD CHOLESTEROL ABNORMAL
     Dosage: 10 MG, UNK
  22. RANITIDINE. [Concomitant]
     Active Substance: RANITIDINE
     Indication: PROPHYLAXIS
     Dosage: 300 MG, UNK
  23. BENZONATATE. [Concomitant]
     Active Substance: BENZONATATE
     Indication: COUGH
     Dosage: UNK
  24. PERCOCET [Concomitant]
     Active Substance: ACETAMINOPHEN\OXYCODONE HYDROCHLORIDE
     Indication: PAIN
     Dosage: [OXYCODONE HYDROCHLORIDE 10MG]/[PARACETAMOL 325MG], ONE TABLET, EVERY 6 HOURS, AS NEEDED
     Route: 048

REACTIONS (4)
  - Back pain [Unknown]
  - Gait disturbance [Unknown]
  - Somnolence [Unknown]
  - Ankle fracture [Unknown]

NARRATIVE: CASE EVENT DATE: 2008
